FAERS Safety Report 20946111 (Version 4)
Quarter: 2024Q4

REPORT INFORMATION
  Report Type: Spontaneous
  Country: US (occurrence: US)
  Receive Date: 20220610
  Receipt Date: 20241231
  Transmission Date: 20250115
  Serious: No
  Sender: PFIZER
  Company Number: US-PFIZER INC-2021470024

PATIENT
  Age: 55 Year
  Sex: Male
  Weight: 136.08 kg

DRUGS (1)
  1. XELJANZ [Suspect]
     Active Substance: TOFACITINIB CITRATE
     Indication: Rheumatoid arthritis
     Dosage: 5 MG, 2X/DAY
     Route: 048
     Dates: start: 202101

REACTIONS (9)
  - Drug ineffective [Unknown]
  - Therapeutic product effect decreased [Unknown]
  - Illness [Unknown]
  - Infection [Unknown]
  - Hepatic enzyme increased [Not Recovered/Not Resolved]
  - Platelet count increased [Unknown]
  - Alanine aminotransferase increased [Unknown]
  - Aspartate aminotransferase increased [Unknown]
  - Liver disorder [Unknown]

NARRATIVE: CASE EVENT DATE: 20241031
